FAERS Safety Report 5014842-5 (Version None)
Quarter: 2006Q2

REPORT INFORMATION
  Report Type: 
  Country: None (occurrence: None)
  Receive Date: 20060414
  Receipt Date: 20060119
  Transmission Date: 20061013
  Serious: No
  Sender: FDA-Public Use
  Company Number: 2006SP000362

PATIENT
  Age: 38 Year
  Sex: Male
  Weight: 104.3273 kg

DRUGS (8)
  1. LUNESTA [Suspect]
     Indication: ANXIETY
     Dosage: 3 MG;HS;ORAL
     Route: 048
     Dates: start: 20060118
  2. LUNESTA [Suspect]
     Indication: INSOMNIA
     Dosage: 3 MG;HS;ORAL
     Route: 048
     Dates: start: 20060118
  3. XANAX [Concomitant]
  4. PREVACID [Concomitant]
  5. ALLOPURINOL [Concomitant]
  6. FLUOXETINE [Concomitant]
  7. HYDROCHLORIDE [Concomitant]
  8. REMERON [Concomitant]

REACTIONS (1)
  - DYSGEUSIA [None]
